FAERS Safety Report 25105158 (Version 1)
Quarter: 2025Q1

REPORT INFORMATION
  Report Type: Spontaneous
  Country: CA (occurrence: CA)
  Receive Date: 20250321
  Receipt Date: 20250321
  Transmission Date: 20250409
  Serious: Yes (Hospitalization)
  Sender: COVIS PHARMA GMBH
  Company Number: CA-AMAGP-2025COV00329

PATIENT
  Age: 79 Year
  Sex: Male

DRUGS (13)
  1. ACLIDINIUM BROMIDE [Suspect]
     Active Substance: ACLIDINIUM BROMIDE
     Indication: Chronic obstructive pulmonary disease
  2. NUCALA [Suspect]
     Active Substance: MEPOLIZUMAB
     Indication: Asthma
     Dates: start: 20180129
  3. NUCALA [Suspect]
     Active Substance: MEPOLIZUMAB
     Dates: start: 20180305
  4. NUCALA [Suspect]
     Active Substance: MEPOLIZUMAB
     Dates: start: 20181205
  5. NUCALA [Suspect]
     Active Substance: MEPOLIZUMAB
     Dates: start: 20190102
  6. NUCALA [Suspect]
     Active Substance: MEPOLIZUMAB
     Dates: start: 20200327
  7. VENTOLIN [Suspect]
     Active Substance: ALBUTEROL SULFATE
  8. ADVAIR DISKUS [Suspect]
     Active Substance: FLUTICASONE PROPIONATE\SALMETEROL XINAFOATE
  9. ADVAIR DISKUS [Suspect]
     Active Substance: FLUTICASONE PROPIONATE\SALMETEROL XINAFOATE
  10. BREO ELLIPTA [Suspect]
     Active Substance: FLUTICASONE FUROATE\VILANTEROL TRIFENATATE
  11. PREDNISONE [Suspect]
     Active Substance: PREDNISONE
  12. SINGULAIR [Suspect]
     Active Substance: MONTELUKAST SODIUM
  13. OXYGEN [Concomitant]
     Active Substance: OXYGEN

REACTIONS (5)
  - Fall [Unknown]
  - Full blood count abnormal [Unknown]
  - Asthma [Unknown]
  - Respiration abnormal [Unknown]
  - Therapeutic product effect incomplete [Unknown]

NARRATIVE: CASE EVENT DATE: 20180225
